FAERS Safety Report 24590191 (Version 1)
Quarter: 2024Q4

REPORT INFORMATION
  Report Type: Spontaneous
  Country: FR (occurrence: FR)
  Receive Date: 20241107
  Receipt Date: 20241107
  Transmission Date: 20250114
  Serious: Yes (Hospitalization)
  Sender: PFIZER
  Company Number: None

PATIENT
  Age: 67 Year
  Sex: Female

DRUGS (3)
  1. AZITHROMYCIN [Suspect]
     Active Substance: AZITHROMYCIN
     Indication: Pneumonia pseudomonal
     Dosage: 750 MG, WEEKLY (250 MG ON MONDAY, WEDNESDAY AND FRIDAY)
     Route: 048
     Dates: start: 20240408
  2. TEZSPIRE [Suspect]
     Active Substance: TEZEPELUMAB-EKKO
     Indication: Asthma
     Dosage: 210 MG, CYCLIC (FREQ:4 WK)
     Route: 058
     Dates: start: 202309
  3. HYDROCORTISONE [Suspect]
     Active Substance: HYDROCORTISONE
     Indication: Asthma
     Dosage: 20 MG, DAILY (10MG 2/DAY - LONG-TERM TREATMENT)
     Route: 048

REACTIONS (3)
  - Arthralgia [Not Recovered/Not Resolved]
  - Pneumonia pseudomonal [Recovering/Resolving]
  - Condition aggravated [Not Recovered/Not Resolved]

NARRATIVE: CASE EVENT DATE: 20240306
